FAERS Safety Report 5568769-0 (Version None)
Quarter: 2007Q4

REPORT INFORMATION
  Report Type: 
  Country: None (occurrence: None)
  Receive Date: 20071220
  Receipt Date: 20061228
  Transmission Date: 20080405
  Serious: No
  Sender: FDA-Public Use
  Company Number: A0632878A

PATIENT
  Age: 80 Year
  Sex: Male

DRUGS (4)
  1. AVODART [Suspect]
     Indication: BENIGN PROSTATIC HYPERPLASIA
     Dosage: 1CAP PER DAY
     Route: 048
  2. FOSAMAX [Concomitant]
  3. MOBIC [Concomitant]
  4. ROBAXIN [Concomitant]

REACTIONS (1)
  - INSOMNIA [None]
